FAERS Safety Report 15320185 (Version 1)
Quarter: 2018Q3

REPORT INFORMATION
  Report Type: Spontaneous
  Country: US (occurrence: US)
  Receive Date: 20180827
  Receipt Date: 20180827
  Transmission Date: 20181010
  Serious: No
  Sender: FDA-Public Use
  Company Number: US-PFIZER INC-2018343964

PATIENT
  Age: 70 Year
  Sex: Male

DRUGS (2)
  1. XELJANZ XR [Suspect]
     Active Substance: TOFACITINIB CITRATE
     Dosage: 11 MG, DAILY ORAL TABLET 1 EVERY DAY
     Route: 048
  2. KETOCONAZOLE. [Interacting]
     Active Substance: KETOCONAZOLE
     Dosage: EXTERNAL

REACTIONS (1)
  - Drug interaction [Unknown]
